FAERS Safety Report 7842117-5 (Version None)
Quarter: 2011Q4

REPORT INFORMATION
  Report Type: 
  Country: None (occurrence: None)
  Receive Date: 20111025
  Receipt Date: 20111019
  Transmission Date: 20120403
  Serious: Yes (Hospitalization, Other)
  Sender: FDA-Public Use
  Company Number: JP-PFIZER INC-2011252476

PATIENT
  Age: 45 Year
  Sex: Male

DRUGS (3)
  1. METHYLPREDNISOLONE SODIUM SUCCINATE [Suspect]
     Indication: NEUROMYELITIS OPTICA
     Dosage: 1 G/DAY FOR 3 DAYS X 3 CYCLES
  2. CYCLOSPORINE [Concomitant]
     Dosage: 350 MG DAILY
  3. PREDNISOLONE [Concomitant]
     Indication: NEUROMYELITIS OPTICA
     Dosage: 60 MG, 1X/DAY
     Route: 048

REACTIONS (1)
  - VENA CAVA THROMBOSIS [None]
